FAERS Safety Report 8446210-8 (Version None)
Quarter: 2012Q2

REPORT INFORMATION
  Report Type: 
  Country: None (occurrence: None)
  Receive Date: 20120618
  Receipt Date: 20120614
  Transmission Date: 20120825
  Serious: No
  Sender: FDA-Public Use
  Company Number: US-BAYER-2012-059886

PATIENT
  Age: 78 Year
  Sex: Male

DRUGS (2)
  1. OMEPRAZOLE [Concomitant]
  2. ALEVE (CAPLET) [Suspect]
     Dosage: 2 TAB AS NEEDED
     Route: 048

REACTIONS (1)
  - ABDOMINAL DISCOMFORT [None]
